FAERS Safety Report 4966735-7 (Version None)
Quarter: 2006Q1

REPORT INFORMATION
  Report Type: 
  Country: None (occurrence: None)
  Receive Date: 20060201
  Receipt Date: 20051220
  Transmission Date: 20060701
  Serious: No
  Sender: FDA-Public Use
  Company Number: 2005PV006093

PATIENT
  Age: 52 Year
  Sex: Male
  Weight: 120.2032 kg

DRUGS (3)
  1. BYETTA [Suspect]
     Indication: DIABETES MELLITUS NON-INSULIN-DEPENDENT
     Dosage: 10MCG;BID;SC, 5 MCG;BID;SC
     Route: 058
     Dates: start: 20051025, end: 20051125
  2. BYETTA [Suspect]
     Indication: DIABETES MELLITUS NON-INSULIN-DEPENDENT
     Dosage: 10MCG;BID;SC, 5 MCG;BID;SC
     Route: 058
     Dates: start: 20051125
  3. ACTOS [Concomitant]

REACTIONS (2)
  - NAUSEA [None]
  - WEIGHT DECREASED [None]
